FAERS Safety Report 9479107 (Version 2)
Quarter: 2013Q3

REPORT INFORMATION
  Report Type: Spontaneous
  Country: JP (occurrence: JP)
  Receive Date: 20130827
  Receipt Date: 20130903
  Transmission Date: 20140515
  Serious: Yes (Other)
  Sender: FDA-Public Use
  Company Number: JP-GLAXOSMITHKLINE-B0901340A

PATIENT
  Age: 82 Year
  Sex: Male

DRUGS (13)
  1. AVOLVE [Suspect]
     Indication: BENIGN PROSTATIC HYPERPLASIA
     Route: 048
     Dates: start: 2008, end: 2011
  2. AVOLVE [Suspect]
     Indication: BENIGN PROSTATIC HYPERPLASIA
     Dosage: .5MG PER DAY
     Route: 048
     Dates: start: 201202, end: 20130630
  3. ACTOS [Concomitant]
     Indication: DIABETES MELLITUS
     Route: 048
     Dates: end: 201110
  4. ACTOS [Concomitant]
     Indication: DIABETES MELLITUS
     Dosage: 15MG PER DAY
     Route: 048
     Dates: start: 201110
  5. BLOPRESS [Concomitant]
     Route: 048
  6. BLOPRESS [Concomitant]
     Dosage: 4MG PER DAY
     Route: 048
     Dates: start: 201107
  7. THYRADIN S [Concomitant]
     Dosage: 25MCG PER DAY
     Route: 048
  8. GASTER D [Concomitant]
     Dosage: 10MG PER DAY
     Route: 048
     Dates: start: 201108
  9. CRESTOR [Concomitant]
     Dosage: 2.5MG PER DAY
     Route: 048
  10. ZYLORIC [Concomitant]
     Dosage: 50MG PER DAY
     Route: 048
     Dates: start: 201009
  11. FLUITRAN [Concomitant]
     Dosage: 2MG PER DAY
     Route: 048
     Dates: start: 201009
  12. MAINTATE [Concomitant]
     Dosage: 2.5MG PER DAY
     Route: 048
     Dates: start: 201009
  13. CALSLOT [Concomitant]
     Dosage: 5MG PER DAY
     Route: 048

REACTIONS (5)
  - Diabetes mellitus inadequate control [Unknown]
  - Diabetes mellitus [Unknown]
  - Glycosylated haemoglobin increased [Unknown]
  - Haematuria [Unknown]
  - Cystitis [Unknown]
